FAERS Safety Report 6313952-X (Version None)
Quarter: 2009Q3

REPORT INFORMATION
  Report Type: 
  Country: None (occurrence: None)
  Receive Date: 20090818
  Receipt Date: 20090813
  Transmission Date: 20100115
  Serious: Yes (Other)
  Sender: FDA-Public Use
  Company Number: US-ROXANE LABORATORIES, INC.-2009-RO-00831RO

PATIENT
  Age: 56 Year
  Sex: Male

DRUGS (10)
  1. MYCOPHENOLATE MOFETIL [Suspect]
     Indication: URTICARIA CHRONIC
     Dosage: 500 MG
  2. MYCOPHENOLATE MOFETIL [Suspect]
     Dosage: 1000 MG
  3. PREDNISONE [Suspect]
     Indication: URTICARIA CHRONIC
  4. MONTELUKAST SODIUM [Suspect]
     Indication: URTICARIA CHRONIC
     Dosage: 10 MG
  5. DAPSONE [Suspect]
     Indication: URTICARIA CHRONIC
     Dosage: 100 MG
  6. HYDROXYCHLOROQUINE SULFATE [Suspect]
     Indication: URTICARIA CHRONIC
     Dosage: 400 MG
  7. COLCHICINE [Suspect]
     Indication: URTICARIA CHRONIC
     Dosage: 1.2 MG
  8. OLSALAZINE SODIUM [Suspect]
     Indication: URTICARIA CHRONIC
     Dosage: 1000 MG
  9. SIROLIMUS [Suspect]
     Indication: URTICARIA CHRONIC
  10. SIROLIMUS [Suspect]
     Dosage: 2 MG

REACTIONS (2)
  - DRUG INEFFECTIVE [None]
  - OEDEMA PERIPHERAL [None]
